FAERS Safety Report 8986157 (Version 1)
Quarter: 2012Q4

REPORT INFORMATION
  Report Type: Spontaneous
  Country: US (occurrence: None)
  Receive Date: 20121219
  Receipt Date: 20121219
  Transmission Date: 20130627
  Serious: Yes (Life-Threatening, Other)
  Sender: FDA-Public Use
  Company Number: None

PATIENT
  Age: 14 Month
  Sex: Male
  Weight: 9.98 kg

DRUGS (1)
  1. BABY ORAJEL DAYTIME REGULAR FORMULA AND NIGHTTIME FORMULA [Suspect]
     Indication: TEETHING
     Dosage: small fingertip dosage once po
     Dates: start: 20121211, end: 20121211

REACTIONS (4)
  - Dyspnoea [None]
  - Respiratory rate increased [None]
  - Erythema [None]
  - Panic reaction [None]
